FAERS Safety Report 12001874 (Version 1)
Quarter: 2016Q1

REPORT INFORMATION
  Report Type: Spontaneous
  Country: US (occurrence: US)
  Receive Date: 20160204
  Receipt Date: 20160204
  Transmission Date: 20160526
  Serious: No
  Sender: FDA-Public Use
  Company Number: US-PERRIGO-15US012458

PATIENT
  Sex: Female

DRUGS (1)
  1. IBUPROFEN. [Suspect]
     Active Substance: IBUPROFEN
     Indication: PRODUCT USED FOR UNKNOWN INDICATION
     Dosage: 1200 TO 1600 MG, QD
     Route: 048
     Dates: start: 201511

REACTIONS (2)
  - Incorrect dose administered [Unknown]
  - Drug screen positive [Unknown]

NARRATIVE: CASE EVENT DATE: 201511
